FAERS Safety Report 6288220-5 (Version None)
Quarter: 2009Q3

REPORT INFORMATION
  Report Type: 
  Country: None (occurrence: None)
  Receive Date: 20090727
  Receipt Date: 20090727
  Transmission Date: 20100115
  Serious: No
  Sender: FDA-Public Use
  Company Number: None

PATIENT
  Age: 23 Year
  Sex: Female
  Weight: 81.6475 kg

DRUGS (2)
  1. CHANTIX [Suspect]
     Indication: SMOKING CESSATION THERAPY
     Dates: start: 20070320, end: 20070830
  2. CHANTIX [Suspect]
     Indication: SMOKING CESSATION THERAPY
     Dates: start: 20071101, end: 20071204

REACTIONS (10)
  - ABNORMAL DREAMS [None]
  - ANGER [None]
  - ANXIETY [None]
  - DEPRESSION [None]
  - GAIT DISTURBANCE [None]
  - LOSS OF CONSCIOUSNESS [None]
  - LOSS OF EMPLOYMENT [None]
  - LOWER LIMB FRACTURE [None]
  - SUICIDAL IDEATION [None]
  - WEIGHT INCREASED [None]
